FAERS Safety Report 4357611-1 (Version None)
Quarter: 2004Q2

REPORT INFORMATION
  Report Type: 
  Country: None (occurrence: None)
  Receive Date: 20040512
  Receipt Date: 20040512
  Transmission Date: 20050107
  Serious: Yes (Life-Threatening)
  Sender: FDA-Public Use
  Company Number: None

PATIENT
  Age: 59 Year
  Sex: Female
  Weight: 709.8 kg

DRUGS (2)
  1. CYTOXAN [Suspect]
     Indication: NON-HODGKIN'S LYMPHOMA
     Dosage: 450 MG ONCE DAILY IV
     Route: 042
     Dates: start: 20040503, end: 20040505
  2. FLUDARABINE PHOSPHATE [Concomitant]

REACTIONS (6)
  - ANGIONEUROTIC OEDEMA [None]
  - DYSPNOEA [None]
  - LOCAL SWELLING [None]
  - PRURITUS [None]
  - RASH [None]
  - URTICARIA [None]
